FAERS Safety Report 4743682-7 (Version None)
Quarter: 2005Q3

REPORT INFORMATION
  Report Type: 
  Country: None (occurrence: None)
  Receive Date: 20050812
  Receipt Date: 20050729
  Transmission Date: 20060218
  Serious: Yes (Hospitalization)
  Sender: FDA-Public Use
  Company Number: GBWYE870329JUL05

PATIENT
  Sex: Female
  Weight: 63 kg

DRUGS (4)
  1. ENBREL [Suspect]
     Indication: RHEUMATOID ARTHRITIS
     Route: 058
     Dates: start: 20050415
  2. CODEINE [Concomitant]
  3. THYROXINE I 125 [Concomitant]
  4. TRAMADOL HCL [Concomitant]

REACTIONS (2)
  - INFECTION [None]
  - RHEUMATOID NODULE [None]
